FAERS Safety Report 5163609-6 (Version None)
Quarter: 2006Q4

REPORT INFORMATION
  Report Type: 
  Country: None (occurrence: None)
  Receive Date: 20061124
  Receipt Date: 20061115
  Transmission Date: 20070319
  Serious: Yes (Other)
  Sender: FDA-Public Use
  Company Number: 2006141749

PATIENT
  Sex: Female
  Weight: 53.5244 kg

DRUGS (5)
  1. XANAX [Suspect]
     Indication: ANXIETY
  2. CHANTIX [Suspect]
     Indication: SMOKING CESSATION THERAPY
     Dates: start: 20061110
  3. RESTORIL [Concomitant]
  4. PREVACID [Concomitant]
  5. PRENATAL VITAMINS (ASCORBIC ACID, BIOTIN, MINERALS NOS, NICOTINIC ACID [Concomitant]

REACTIONS (12)
  - BACK PAIN [None]
  - BLEPHARITIS [None]
  - CATARACT OPERATION [None]
  - CONSTIPATION [None]
  - DACRYOCYSTORHINOSTOMY [None]
  - DEPRESSION [None]
  - DRUG INEFFECTIVE [None]
  - DRY EYE [None]
  - EYE INFECTION [None]
  - FAECES DISCOLOURED [None]
  - IRRITABILITY [None]
  - LAZINESS [None]
